FAERS Safety Report 6068952-4 (Version None)
Quarter: 2009Q1

REPORT INFORMATION
  Report Type: 
  Country: None (occurrence: None)
  Receive Date: 20090206
  Receipt Date: 20090127
  Transmission Date: 20090719
  Serious: Yes (Other)
  Sender: FDA-Public Use
  Company Number: PHHO2007US02764

PATIENT
  Sex: Male
  Weight: 98.4 kg

DRUGS (1)
  1. TASIGNA [Suspect]
     Indication: CHRONIC MYELOID LEUKAEMIA
     Route: 048
     Dates: start: 20061004, end: 20070131

REACTIONS (6)
  - CHRONIC GRAFT VERSUS HOST DISEASE [None]
  - EOSINOPHILIC FASCIITIS [None]
  - ERYTHEMA [None]
  - LIMB DISCOMFORT [None]
  - MORPHOEA [None]
  - SCLERODERMA [None]
